FAERS Safety Report 13607559 (Version 1)
Quarter: 2017Q2

REPORT INFORMATION
  Report Type: Spontaneous
  Country: DE (occurrence: DE)
  Receive Date: 20170602
  Receipt Date: 20170602
  Transmission Date: 20170830
  Serious: Yes (Hospitalization)
  Sender: FDA-Public Use
  Company Number: DE-ABBVIE-17P-062-1994473-00

PATIENT
  Age: 50 Year
  Sex: Male

DRUGS (5)
  1. GASTROZEPIN [Suspect]
     Active Substance: PIRENZEPINE HYDROCHLORIDE
     Indication: PRODUCT USED FOR UNKNOWN INDICATION
     Route: 048
     Dates: start: 20100101
  2. CLOZAPINE (CLOZAPINE) [Suspect]
     Active Substance: CLOZAPINE
     Route: 048
     Dates: start: 20160901, end: 20160906
  3. ACETYLSALICYLSAEURE (ACETYLSALICYLIC ACID) [Concomitant]
     Indication: PRODUCT USED FOR UNKNOWN INDICATION
     Route: 065
  4. CLOZAPINE (CLOZAPINE) [Suspect]
     Active Substance: CLOZAPINE
     Indication: PRODUCT USED FOR UNKNOWN INDICATION
     Route: 048
     Dates: start: 20160727, end: 20160831
  5. VALPROATE SODIUM. [Suspect]
     Active Substance: VALPROATE SODIUM
     Indication: PRODUCT USED FOR UNKNOWN INDICATION
     Route: 048
     Dates: start: 20160705

REACTIONS (4)
  - Restlessness [Recovered/Resolved]
  - Depressed level of consciousness [Recovered/Resolved]
  - C-reactive protein increased [Recovered/Resolved]
  - Oxygen saturation decreased [Recovered/Resolved]

NARRATIVE: CASE EVENT DATE: 20160906
